FAERS Safety Report 9963722 (Version 1)
Quarter: 2014Q1

REPORT INFORMATION
  Report Type: Report from Study
  Country: US (occurrence: US)
  Receive Date: 20140305
  Receipt Date: 20140305
  Transmission Date: 20141002
  Serious: No
  Sender: FDA-Public Use
  Company Number: US-ABBVIE-13P-163-1118750-00

PATIENT
  Age: 58 Year
  Sex: Female
  Weight: 77.18 kg

DRUGS (3)
  1. HUMIRA [Suspect]
     Indication: RHEUMATOID ARTHRITIS
     Dates: start: 20110924, end: 201207
  2. LEVOTHYROXINE [Concomitant]
     Indication: HYPOTHYROIDISM
  3. BENICAR [Concomitant]
     Indication: HYPERTENSION

REACTIONS (3)
  - Injection site pruritus [Recovered/Resolved]
  - Injection site mass [Recovered/Resolved]
  - Arthralgia [Not Recovered/Not Resolved]
